FAERS Safety Report 9637106 (Version 1)
Quarter: 2013Q4

REPORT INFORMATION
  Report Type: Spontaneous
  Country: GB (occurrence: GB)
  Receive Date: 20131022
  Receipt Date: 20131022
  Transmission Date: 20140711
  Serious: Yes (Other)
  Sender: FDA-Public Use
  Company Number: GB-BAYER-2013-127459

PATIENT
  Sex: Female

DRUGS (1)
  1. YASMIN, FILM-COATED TABLETS, 0.03 MG/3 MG [Suspect]
     Dosage: UNK
     Dates: start: 2010, end: 201308

REACTIONS (6)
  - Migraine [Not Recovered/Not Resolved]
  - Neck pain [Not Recovered/Not Resolved]
  - Eye pain [Not Recovered/Not Resolved]
  - Vertigo [None]
  - Tension headache [None]
  - Neurological symptom [None]
